FAERS Safety Report 10103093 (Version 1)
Quarter: 2014Q2

REPORT INFORMATION
  Report Type: Spontaneous
  Country: US (occurrence: US)
  Receive Date: 20140424
  Receipt Date: 20140424
  Transmission Date: 20141212
  Serious: Yes (Hospitalization)
  Sender: FDA-Public Use
  Company Number: US-GLAXOSMITHKLINE-A1069768A

PATIENT
  Age: 65 Year
  Sex: Female

DRUGS (4)
  1. ADVAIR DISKUS [Suspect]
     Indication: DYSPNOEA
     Dosage: 1PUFF TWICE PER DAY
     Route: 055
     Dates: start: 2010, end: 20140330
  2. BREO ELLIPTA [Suspect]
     Indication: CHRONIC OBSTRUCTIVE PULMONARY DISEASE
     Dosage: 1PUFF PER DAY
     Route: 055
     Dates: start: 20140331
  3. SPIRIVA [Concomitant]
  4. PRO-AIR [Concomitant]

REACTIONS (5)
  - Dyspnoea [Recovering/Resolving]
  - Dry mouth [Not Recovered/Not Resolved]
  - Dysphagia [Not Recovered/Not Resolved]
  - Lip disorder [Not Recovered/Not Resolved]
  - Thirst [Not Recovered/Not Resolved]
